FAERS Safety Report 9539866 (Version 1)
Quarter: 2013Q2

REPORT INFORMATION
  Report Type: Spontaneous
  Country: US (occurrence: None)
  Receive Date: 20130507
  Receipt Date: 20130507
  Transmission Date: 20140414
  Serious: No
  Sender: FDA-Public Use
  Company Number: PHEH2013US004122

PATIENT
  Sex: Female

DRUGS (5)
  1. AFINITOR [Suspect]
     Route: 048
     Dates: start: 20130123
  2. AROMASIN (EXEMESTANE) [Concomitant]
  3. XGEVA (DENOSUMAB) [Concomitant]
  4. LIPITOR (ATORVASTATIN CALCIUM) [Concomitant]
  5. CYMBALTA (DULOXETINE HYDROCHLORIDE) [Concomitant]

REACTIONS (3)
  - Fatigue [None]
  - Arthralgia [None]
  - Oral pain [None]
